FAERS Safety Report 8390694-0 (Version None)
Quarter: 2012Q2

REPORT INFORMATION
  Report Type: 
  Country: None (occurrence: None)
  Receive Date: 20120529
  Receipt Date: 20120522
  Transmission Date: 20120825
  Serious: Yes (Other)
  Sender: FDA-Public Use
  Company Number: PHHY2012US043844

PATIENT
  Age: 11 Year
  Sex: Female

DRUGS (2)
  1. LEUPROLIDE ACETATE [Suspect]
     Indication: GROWTH RETARDATION
  2. SOMATROPIN RDNA [Suspect]
     Indication: GROWTH RETARDATION

REACTIONS (1)
  - FOCAL NODULAR HYPERPLASIA [None]
